FAERS Safety Report 6332936-9 (Version None)
Quarter: 2009Q3

REPORT INFORMATION
  Report Type: 
  Country: None (occurrence: None)
  Receive Date: 20090828
  Receipt Date: 20090818
  Transmission Date: 20100115
  Serious: Yes (Other)
  Sender: FDA-Public Use
  Company Number: GB-ABBOTT-09P-167-0591765-00

PATIENT
  Age: 71 Year
  Sex: Male

DRUGS (5)
  1. EPILIM [Suspect]
     Indication: EPILEPSY
     Dosage: LESS THAN 3000 MG BID
     Route: 048
     Dates: start: 19810101, end: 20080101
  2. EPILIM [Suspect]
     Route: 048
     Dates: start: 20080101, end: 20090101
  3. EPILIM CHRONO [Suspect]
     Indication: EPILEPSY
     Route: 048
     Dates: start: 20090101
  4. LAMOTRIGINE [Concomitant]
     Indication: DRUG USE FOR UNKNOWN INDICATION
     Route: 065
  5. FOLIC ACID [Concomitant]
     Indication: DRUG USE FOR UNKNOWN INDICATION
     Route: 065

REACTIONS (3)
  - CONVULSION [None]
  - DEMENTIA [None]
  - TREMOR [None]
